FAERS Safety Report 6475824-X (Version None)
Quarter: 2009Q4

REPORT INFORMATION
  Report Type: 
  Country: None (occurrence: None)
  Receive Date: 20091204
  Receipt Date: 20090627
  Transmission Date: 20100525
  Serious: No
  Sender: FDA-Public Use
  Company Number: US-AMGEN-KDL327126

PATIENT
  Sex: Female

DRUGS (2)
  1. ENBREL [Suspect]
     Indication: PSORIATIC ARTHROPATHY
     Route: 058
     Dates: start: 20081229
  2. ENBREL [Suspect]
     Indication: PSORIASIS

REACTIONS (4)
  - FEELING HOT [None]
  - HYPOAESTHESIA [None]
  - PAIN IN EXTREMITY [None]
  - SKIN DISCOLOURATION [None]
